FAERS Safety Report 4279420-4 (Version None)
Quarter: 2004Q1

REPORT INFORMATION
  Report Type: 
  Country: None (occurrence: None)
  Receive Date: 20040127
  Receipt Date: 20031215
  Transmission Date: 20041129
  Serious: Yes (Death, Hospitalization)
  Sender: FDA-Public Use
  Company Number: WAES 0312USA01820

PATIENT
  Age: 73 Year
  Sex: Male

DRUGS (8)
  1. AMLODIN [Concomitant]
     Indication: HYPERTENSION
     Route: 048
     Dates: start: 20000814
  2. GASTROM [Concomitant]
     Indication: REFLUX OESOPHAGITIS
     Route: 048
     Dates: start: 19950629
  3. PEPCID RPD [Suspect]
     Indication: REFLUX OESOPHAGITIS
     Route: 048
     Dates: start: 19980928, end: 20031010
  4. CEROCRAL [Concomitant]
     Route: 048
     Dates: start: 20010730
  5. GASMOTIN [Concomitant]
     Indication: REFLUX OESOPHAGITIS
     Route: 048
     Dates: start: 20001030
  6. HARNAL [Concomitant]
     Indication: BENIGN PROSTATIC HYPERPLASIA
     Route: 048
     Dates: start: 19970808
  7. [THERAPY UNSPECIFIED] [Concomitant]
     Indication: REFLUX OESOPHAGITIS
     Route: 048
     Dates: start: 19990412
  8. CERNILTON [Concomitant]
     Indication: BENIGN PROSTATIC HYPERPLASIA
     Route: 048
     Dates: start: 19930517

REACTIONS (6)
  - BONE MARROW DEPRESSION [None]
  - PANCYTOPENIA [None]
  - PETECHIAE [None]
  - PNEUMONIA [None]
  - PYREXIA [None]
  - RESPIRATORY FAILURE [None]
